FAERS Safety Report 19924837 (Version 1)
Quarter: 2021Q4

REPORT INFORMATION
  Report Type: Report from Study
  Country: AU (occurrence: AU)
  Receive Date: 20211006
  Receipt Date: 20211006
  Transmission Date: 20220303
  Serious: Yes (Other)
  Sender: FDA-Public Use
  Company Number: AU-NOVARTISPH-NVSC2021AU221537

PATIENT
  Sex: Male

DRUGS (2)
  1. ENTRESTO [Suspect]
     Active Substance: SACUBITRIL\VALSARTAN
     Dosage: UNK
     Route: 065
  2. CARVEDILOL [Suspect]
     Active Substance: CARVEDILOL
     Indication: Heart rate irregular
     Dosage: UNK
     Route: 065

REACTIONS (14)
  - Heart rate irregular [Unknown]
  - Heart rate abnormal [Unknown]
  - Cardiac failure [Unknown]
  - Pericardial effusion [Unknown]
  - Aortic stenosis [Unknown]
  - Tricuspid valve incompetence [Unknown]
  - Congestive cardiomyopathy [Unknown]
  - Systolic dysfunction [Unknown]
  - Depression [Unknown]
  - Amnesia [Recovered/Resolved]
  - Groin pain [Unknown]
  - Procedural pain [Unknown]
  - Asthenia [Unknown]
  - Weight increased [Unknown]
